FAERS Safety Report 9472505 (Version 3)
Quarter: 2013Q3

REPORT INFORMATION
  Report Type: Report from Study
  Country: AR (occurrence: AR)
  Receive Date: 20130823
  Receipt Date: 20130927
  Transmission Date: 20140515
  Serious: Yes (Other)
  Sender: FDA-Public Use
  Company Number: PHHY2013AR090579

PATIENT
  Sex: Female

DRUGS (2)
  1. EXELON PATCH [Suspect]
     Indication: DEMENTIA ALZHEIMER^S TYPE
     Dosage: 4.6 MG, (PATCH 5 CM2) DAILY
     Route: 062
     Dates: start: 2012
  2. EXELON PATCH [Suspect]
     Dosage: 9.5 MG, (PATCH 10 CM2)
     Route: 062

REACTIONS (3)
  - Cardiac disorder [Recovering/Resolving]
  - Arterial occlusive disease [Recovering/Resolving]
  - Drug ineffective [Not Recovered/Not Resolved]
